FAERS Safety Report 26146647 (Version 1)
Quarter: 2025Q4

REPORT INFORMATION
  Report Type: Spontaneous
  Country: EU (occurrence: EU)
  Receive Date: 20251211
  Receipt Date: 20251211
  Transmission Date: 20260118
  Serious: Yes (Other)
  Sender: BAUSCH AND LOMB
  Company Number: EU-SUN-PHARMACEUTICAL-INDUSTRIES-LTD-2025RR-538908

PATIENT
  Age: 26 Year
  Sex: Female

DRUGS (12)
  1. VENLAFAXINE [Suspect]
     Active Substance: VENLAFAXINE HYDROCHLORIDE
     Indication: Depression
     Dosage: 75 MILLIGRAM, DAILY
     Route: 065
     Dates: start: 2021, end: 2021
  2. BUPROPION [Suspect]
     Active Substance: BUPROPION
     Indication: Depression
     Dosage: 300 MILLIGRAM, DAILY
     Route: 065
     Dates: start: 2024, end: 2024
  3. BUPROPION [Suspect]
     Active Substance: BUPROPION
     Dosage: DOSE RE-INTRODUCED
     Route: 065
  4. ARIPIPRAZOLE [Suspect]
     Active Substance: ARIPIPRAZOLE
     Indication: Depression
     Dosage: 15 MILLIGRAM, DAILY
     Route: 065
     Dates: start: 2021, end: 2021
  5. ARIPIPRAZOLE [Suspect]
     Active Substance: ARIPIPRAZOLE
     Dosage: DOSE RE-INTRODUCED
     Route: 065
  6. AMISULPRIDE [Suspect]
     Active Substance: AMISULPRIDE
     Indication: Depression
     Dosage: 150 MILLIGRAM, DAILY
     Route: 065
     Dates: start: 2021, end: 2021
  7. AMISULPRIDE [Suspect]
     Active Substance: AMISULPRIDE
     Dosage: DOSE RE-INTRODUCED
     Route: 065
  8. PAROXETINE [Suspect]
     Active Substance: PAROXETINE
     Indication: Depression
     Dosage: UNK
     Route: 065
     Dates: start: 2023, end: 2023
  9. PAROXETINE [Suspect]
     Active Substance: PAROXETINE
     Dosage: DOSE RE-INTRODUCED
     Route: 065
  10. MIRTAZAPINE [Suspect]
     Active Substance: MIRTAZAPINE
     Indication: Depression
     Dosage: 30 MILLIGRAM, DAILY
     Route: 065
     Dates: start: 2024, end: 2024
  11. MIRTAZAPINE [Suspect]
     Active Substance: MIRTAZAPINE
     Dosage: DOSE RE-INTRODUCED
     Route: 065
  12. TRAZODONE [Suspect]
     Active Substance: TRAZODONE HYDROCHLORIDE
     Indication: Depression
     Dosage: 300 MILLIGRAM, DAILY
     Route: 065
     Dates: start: 2021, end: 2021

REACTIONS (4)
  - Adverse drug reaction [Unknown]
  - Akathisia [Unknown]
  - Hyperprolactinaemia [Unknown]
  - Drug ineffective [Unknown]
